FAERS Safety Report 5782925-8 (Version None)
Quarter: 2008Q2

REPORT INFORMATION
  Report Type: 
  Country: None (occurrence: None)
  Receive Date: 20080619
  Receipt Date: 20080619
  Transmission Date: 20081010
  Serious: Yes (Life-Threatening, Hospitalization)
  Sender: FDA-Public Use
  Company Number: None

PATIENT
  Sex: Male
  Weight: 116.5744 kg

DRUGS (3)
  1. DIGOXIN [Suspect]
     Dates: start: 20080505
  2. DIGOXIN [Suspect]
     Dates: start: 20080507
  3. DIGETEK [Suspect]

REACTIONS (3)
  - COLD SWEAT [None]
  - DIZZINESS [None]
  - NAUSEA [None]
